FAERS Safety Report 7976048-7 (Version None)
Quarter: 2011Q4

REPORT INFORMATION
  Report Type: 
  Country: None (occurrence: None)
  Receive Date: 20111213
  Receipt Date: 20111205
  Transmission Date: 20120403
  Serious: Yes (Other)
  Sender: FDA-Public Use
  Company Number: BR-BAYER-2011-117381

PATIENT
  Sex: Female

DRUGS (1)
  1. AVELOX [Suspect]
     Dosage: UNK
     Dates: start: 20111203

REACTIONS (8)
  - ABDOMINAL PAIN UPPER [None]
  - BALANCE DISORDER [None]
  - DIZZINESS [None]
  - VOMITING [None]
  - SOMNOLENCE [None]
  - HYPERHIDROSIS [None]
  - MALAISE [None]
  - DIARRHOEA [None]
